FAERS Safety Report 9896904 (Version 3)
Quarter: 2014Q2

REPORT INFORMATION
  Report Type: Report from Study
  Country: AU (occurrence: AU)
  Receive Date: 20140214
  Receipt Date: 20140508
  Transmission Date: 20141212
  Serious: Yes (Other)
  Sender: FDA-Public Use
  Company Number: AU-ROCHE-1160918

PATIENT
  Age: 66 Year
  Sex: Female

DRUGS (23)
  1. ACTEMRA [Suspect]
     Indication: RHEUMATOID ARTHRITIS
     Route: 042
     Dates: start: 20120118
  2. ASPIRIN [Concomitant]
     Route: 048
  3. CADUET [Concomitant]
     Indication: BLOOD PRESSURE
     Dosage: 10/80 MG
     Route: 048
  4. OMEPRAZOLE [Concomitant]
     Route: 048
  5. CLOPIDOGREL [Concomitant]
     Route: 065
  6. PARACETAMOL [Concomitant]
     Indication: ANALGESIC THERAPY
     Route: 065
  7. METHOTREXATE [Concomitant]
     Route: 065
  8. FOLIC ACID [Concomitant]
     Dosage: FRIDAY +  SUNDAY
     Route: 065
  9. PREDNISOLONE [Concomitant]
     Route: 065
  10. CALCIUM CARBONATE [Concomitant]
     Route: 065
  11. FISH OIL [Concomitant]
     Route: 065
  12. CHOLECALCIFEROL [Concomitant]
     Route: 048
  13. ALDACTONE (AUSTRALIA) [Concomitant]
     Route: 048
  14. COVERSYL PLUS [Concomitant]
     Indication: BLOOD PRESSURE
     Dosage: PERIDOPROL 5 MG AND INDAPAMIDE 1.25MG
     Route: 048
  15. FUROSEMIDE [Concomitant]
     Route: 048
  16. DIABEX XR [Concomitant]
     Dosage: 3 TABLETS IN THE EVENING.
     Route: 065
  17. DIAMICRON MR [Concomitant]
     Dosage: IN THE MORNING.
     Route: 065
  18. CRESTOR [Concomitant]
     Route: 048
  19. PROBITOR (AUSTRALIA) [Concomitant]
     Route: 048
  20. ISCOVER [Concomitant]
     Route: 048
  21. MEGAFOL [Concomitant]
     Dosage: FRIDAY  AND SUNDAY, WHILE TAKING METHOTREXATE.
     Route: 065
  22. PREDNISOLONE [Concomitant]
     Indication: RHEUMATOID ARTHRITIS
     Route: 048
  23. PANADOL OSTEO [Concomitant]
     Indication: ANALGESIC THERAPY
     Route: 065

REACTIONS (8)
  - Musculoskeletal stiffness [Not Recovered/Not Resolved]
  - Arthralgia [Not Recovered/Not Resolved]
  - Hypotension [Recovered/Resolved]
  - Cough [Recovered/Resolved]
  - Fall [Unknown]
  - Contusion [Recovered/Resolved]
  - Back pain [Recovering/Resolving]
  - Fatigue [Unknown]
